FAERS Safety Report 8837871 (Version 2)
Quarter: 2012Q4

REPORT INFORMATION
  Report Type: 
  Country: US (occurrence: US)
  Receive Date: 20121012
  Receipt Date: 20121126
  Transmission Date: 20130627
  Serious: Yes (Hospitalization)
  Sender: FDA-Public Use
  Company Number: US-BAYER-2012-103619

PATIENT
  Age: 42 Year
  Sex: Female
  Weight: 71.97 kg

DRUGS (14)
  1. OCELLA [Suspect]
  2. YASMIN [Suspect]
  3. TRAMADOL [Concomitant]
     Indication: PAIN
     Dosage: 50 mg 1 every 12 hours as needed
     Route: 048
  4. TRAMADOL [Concomitant]
     Indication: PAIN
     Dosage: 100 mg 1 tablet in the evening as needed, PRN
     Route: 048
  5. METHOCARBAMOL [Concomitant]
     Indication: SPASMS
     Dosage: 750 mg 1 three times daily as needed
     Route: 048
  6. AMLODIPINE W/BENAZEPRIL [Concomitant]
  7. HYDROCODONE W/ACETAMINOPHEN [Concomitant]
     Indication: PAIN
     Dosage: 1 to 2 tablets every 6 to 8 hours as needed
     Route: 048
  8. OPANA [Concomitant]
     Dosage: 10 mg 1 tablet 1 to 2 times a day
     Route: 048
  9. LYRICA [Concomitant]
     Dosage: 50 mg 1 capsule three times daily for 1 month
     Route: 048
  10. ACETAMINOPHEN W/OXYCODONE [Concomitant]
     Dosage: 7.5-500 mg 1 tablet up to three times daily
     Route: 048
  11. TIZANIDINE [Concomitant]
     Dosage: 4 mg 1 tablet twice daily for 1 month
     Route: 048
  12. MELOXICAM [Concomitant]
     Dosage: 7.5 mg 1 tablet twice daily
     Route: 048
  13. LEXAPRO [Concomitant]
  14. PRO-AIR [Concomitant]

REACTIONS (1)
  - Pulmonary embolism [None]
